FAERS Safety Report 4882202-3 (Version None)
Quarter: 2006Q1

REPORT INFORMATION
  Report Type: 
  Country: None (occurrence: None)
  Receive Date: 20060117
  Receipt Date: 20050823
  Transmission Date: 20060701
  Serious: Yes (Hospitalization, Disabling)
  Sender: FDA-Public Use
  Company Number: US-MERCK-0508USA03898

PATIENT
  Age: 70 Year
  Sex: Female
  Weight: 64 kg

DRUGS (21)
  1. ADVAIR DISKUS 250/50 [Concomitant]
     Route: 065
  2. SMZ-TMP [Concomitant]
     Route: 065
  3. PROMETHAZINE [Concomitant]
     Route: 065
  4. PREMPRO [Concomitant]
     Route: 065
  5. LODINE [Concomitant]
     Route: 065
  6. PROVERA [Concomitant]
     Route: 065
  7. FLEXERIL [Concomitant]
     Route: 065
  8. CEPHALEXIN [Concomitant]
     Route: 065
  9. CELEBREX [Concomitant]
     Route: 065
  10. VIOXX [Suspect]
     Indication: PAIN
     Route: 048
     Dates: start: 20000201, end: 20040907
  11. VIOXX [Suspect]
     Indication: ARTHRITIS
     Route: 048
     Dates: start: 20000201, end: 20040907
  12. EFFEXOR [Concomitant]
     Route: 065
  13. PREVACID [Concomitant]
     Route: 048
  14. EVISTA [Concomitant]
     Route: 065
  15. XALATAN [Concomitant]
     Route: 065
  16. CROMOLYN SODIUM NASAL SPRAY USP [Concomitant]
     Route: 065
  17. PATANOL [Concomitant]
     Route: 065
  18. HYDROCODONE HYDROCHLORIDE [Concomitant]
     Route: 065
  19. ZYMAR [Concomitant]
     Route: 065
  20. ALBUTEROL [Concomitant]
     Route: 065
  21. ULTRACET [Concomitant]
     Route: 065

REACTIONS (10)
  - BARRETT'S OESOPHAGUS [None]
  - CEREBRAL ARTERY OCCLUSION [None]
  - CONVULSION [None]
  - LABYRINTHITIS [None]
  - OSTEOARTHRITIS [None]
  - ROTATOR CUFF SYNDROME [None]
  - SCIATICA [None]
  - SIMPLE PARTIAL SEIZURES [None]
  - TRANSIENT ISCHAEMIC ATTACK [None]
  - URINARY INCONTINENCE [None]
